FAERS Safety Report 8563961-5 (Version None)
Quarter: 2012Q3

REPORT INFORMATION
  Report Type: 
  Country: None (occurrence: None)
  Receive Date: 20120803
  Receipt Date: 20120727
  Transmission Date: 20120928
  Serious: Yes (Other)
  Sender: FDA-Public Use
  Company Number: PHHY2012JP061693

PATIENT
  Age: 37 Year
  Sex: Female

DRUGS (3)
  1. LIPITOR [Suspect]
  2. SENNOSIDE A+B [Suspect]
     Dosage: 24 MG, DAILY
     Route: 048
     Dates: start: 20120613
  3. NEORAL [Suspect]
     Indication: DERMATOMYOSITIS
     Dosage: 100 MG, DAILY
     Route: 048
     Dates: start: 20100501

REACTIONS (1)
  - HYPOAESTHESIA [None]
